FAERS Safety Report 14307235 (Version 1)
Quarter: 2017Q4

REPORT INFORMATION
  Report Type: Spontaneous
  Country: US (occurrence: US)
  Receive Date: 20171219
  Receipt Date: 20171219
  Transmission Date: 20180321
  Serious: Yes (Other)
  Sender: FDA-Public Use
  Company Number: None

PATIENT
  Sex: Male
  Weight: 19.35 kg

DRUGS (1)
  1. OSELTAMIVIR PHOSPHATE (FOR ORAL SUSPENSION) [Suspect]
     Active Substance: OSELTAMIVIR PHOSPHATE
     Indication: INFLUENZA
     Dosage: ?          QUANTITY:7.5 ML;?
     Route: 048
     Dates: start: 20171218, end: 20171218

REACTIONS (2)
  - Oral discomfort [None]
  - Lip swelling [None]

NARRATIVE: CASE EVENT DATE: 20171218
